FAERS Safety Report 16099759 (Version 10)
Quarter: 2022Q1

REPORT INFORMATION
  Report Type: Report from Study
  Country: GB (occurrence: GB)
  Receive Date: 20190321
  Receipt Date: 20220208
  Transmission Date: 20220424
  Serious: Yes (Other)
  Sender: FDA-Public Use
  Company Number: GB-CELLTRION INC.-2019GB019328

PATIENT

DRUGS (18)
  1. TRASTUZUMAB [Suspect]
     Active Substance: TRASTUZUMAB
     Indication: Breast cancer metastatic
     Dosage: 620 MG (LOADING DOSE, MOST RECENT DOSE PRIOR TO SAE)
     Route: 041
     Dates: start: 20151012
  2. TRASTUZUMAB [Suspect]
     Active Substance: TRASTUZUMAB
     Dosage: 6 MG/KG (MAINTENANCE DOSE), Q3WK
     Route: 042
     Dates: start: 20151102
  3. PERTUZUMAB [Suspect]
     Active Substance: PERTUZUMAB
     Indication: Breast cancer metastatic
     Dosage: 840 MILLIGRAM, LOADING DOSE (ADDITIONAL INFO ON DRUG: OFF LABEL USE)
     Route: 042
     Dates: start: 20151012
  4. PERTUZUMAB [Suspect]
     Active Substance: PERTUZUMAB
     Dosage: 420 MG, EVERY 3 WEEKS (MAINTENANCE DOSE,MOST RECENT DOSE PRIOR TO SAE)  (ADDITIONAL INFO ON DRUG: OF
     Route: 042
     Dates: start: 20151102
  5. DOCETAXEL [Suspect]
     Active Substance: DOCETAXEL
     Indication: Breast cancer metastatic
     Dosage: 130 MG, Q3WK (ADDITIONAL INFO ON DRUG: OFF LABEL USE)
     Route: 042
     Dates: start: 20151013, end: 20151013
  6. PACLITAXEL [Suspect]
     Active Substance: PACLITAXEL
     Indication: Breast cancer metastatic
     Dosage: 840 MG
     Route: 042
     Dates: start: 20151012
  7. PACLITAXEL [Suspect]
     Active Substance: PACLITAXEL
     Dosage: 140 MG
     Route: 042
     Dates: start: 20151125, end: 20160302
  8. CALCIUM CARBONATE\CHOLECALCIFEROL [Concomitant]
     Active Substance: CALCIUM CARBONATE\CHOLECALCIFEROL
     Dosage: 1.5 GRAM (GIVEN FOR THE PREVENTION OF VITAMIN D DEFICIENCY)
     Route: 048
     Dates: start: 20101007
  9. ALENDRONIC ACID [Concomitant]
     Active Substance: ALENDRONIC ACID
     Indication: Osteoporosis
     Dosage: 70 MG, QWK
     Dates: start: 20160821, end: 201611
  10. CYCLIZINE [Concomitant]
     Active Substance: CYCLIZINE
     Dosage: UNK
  11. CHOLECALCIFEROL [Concomitant]
     Active Substance: CHOLECALCIFEROL
     Indication: Osteoporosis
     Dosage: 800 IU, QD
     Route: 048
     Dates: start: 20160821, end: 201611
  12. CHOLECALCIFEROL [Concomitant]
     Active Substance: CHOLECALCIFEROL
     Dosage: UNK, QD
     Route: 048
     Dates: start: 20170203
  13. LOPERAMIDE HYDROCHLORIDE [Concomitant]
     Active Substance: LOPERAMIDE HYDROCHLORIDE
     Dosage: 2 MG
     Route: 048
     Dates: start: 20151015
  14. ACETAMINOPHEN [Concomitant]
     Active Substance: ACETAMINOPHEN
     Dosage: 500 MG, UNK (PRE MEDICATION)
     Route: 048
     Dates: start: 20151012
  15. RISEDRONATE SODIUM [Concomitant]
     Active Substance: RISEDRONATE SODIUM
     Dosage: 35 G (GIVEN FOR THE PREVENTION OSTEOPOROSIS IN POSTMENOPAUSAL WOMEN)
     Route: 048
     Dates: start: 20101007, end: 20160807
  16. RISEDRONIC ACID [Concomitant]
     Active Substance: RISEDRONIC ACID
     Dosage: UNK
  17. ZOLEDRONIC ACID [Concomitant]
     Active Substance: ZOLEDRONIC ACID
     Indication: Osteoporosis
     Dosage: 5 MILLIGRAM, EVERY 6 MIN
     Route: 042
     Dates: start: 20170203
  18. DEXAMETHASONE [Concomitant]
     Active Substance: DEXAMETHASONE
     Dosage: UNK

REACTIONS (10)
  - Lower respiratory tract infection [Recovered/Resolved]
  - Lower respiratory tract infection [Recovered/Resolved]
  - Neuropathy peripheral [Recovered/Resolved]
  - Rib fracture [Recovered/Resolved]
  - Mouth ulceration [Recovered/Resolved]
  - Musculoskeletal chest pain [Not Recovered/Not Resolved]
  - Urinary tract infection [Recovered/Resolved]
  - Urticaria [Recovered/Resolved]
  - Rash [Recovered/Resolved]
  - Off label use [Unknown]

NARRATIVE: CASE EVENT DATE: 20151211
